FAERS Safety Report 5816519-2 (Version None)
Quarter: 2008Q3

REPORT INFORMATION
  Report Type: 
  Country: None (occurrence: None)
  Receive Date: 20080717
  Receipt Date: 20080717
  Transmission Date: 20090109
  Serious: Yes (Hospitalization)
  Sender: FDA-Public Use
  Company Number: None

PATIENT
  Sex: Female
  Weight: 68.0396 kg

DRUGS (2)
  1. RAPAMYCIN [Suspect]
     Indication: PANCREATIC CARCINOMA METASTATIC
     Dosage: 16 MG Q WEEK PO
     Route: 048
     Dates: start: 20080709, end: 20080709
  2. KETOCONAZOLE [Suspect]
     Dosage: 200 MG BID PO
     Route: 048
     Dates: start: 20080715, end: 20080715

REACTIONS (3)
  - OXYGEN SATURATION DECREASED [None]
  - PNEUMONIA [None]
  - URINARY TRACT INFECTION [None]
